FAERS Safety Report 5170670-1 (Version None)
Quarter: 2006Q4

REPORT INFORMATION
  Report Type: 
  Country: None (occurrence: None)
  Receive Date: 20061205
  Receipt Date: 20061127
  Transmission Date: 20070319
  Serious: Yes (Life-Threatening, Hospitalization, Other)
  Sender: FDA-Public Use
  Company Number: 2006SP004547

PATIENT
  Age: 81 Year
  Sex: Female
  Weight: 76 kg

DRUGS (1)
  1. TEMODAL [Suspect]
     Indication: METASTATIC MALIGNANT MELANOMA
     Dosage: 280 MG; QD; PO
     Route: 048
     Dates: start: 20060929, end: 20061018

REACTIONS (5)
  - EPISTAXIS [None]
  - FEBRILE NEUTROPENIA [None]
  - INFECTION [None]
  - PURPURA [None]
  - THROMBOCYTOPENIA [None]
